FAERS Safety Report 23066115 (Version 2)
Quarter: 2024Q1

REPORT INFORMATION
  Report Type: Spontaneous
  Country: CA (occurrence: CA)
  Receive Date: 20231014
  Receipt Date: 20240221
  Transmission Date: 20240409
  Serious: Yes (Hospitalization)
  Sender: FDA-Public Use
  Company Number: CA-APOTEX-2023AP014458

PATIENT
  Age: 65 Year
  Sex: Female

DRUGS (3)
  1. CARBOPLATIN [Suspect]
     Active Substance: CARBOPLATIN
     Indication: Chemotherapy
     Route: 042
  2. DOCETAXEL [Suspect]
     Active Substance: DOCETAXEL\DOCETAXEL ANHYDROUS
     Indication: Chemotherapy
  3. FILGRASTIM [Suspect]
     Active Substance: FILGRASTIM
     Indication: Breast cancer female
     Dosage: UNK, 480MCG/0.8ML X 7 DOSES X 4 CYCLES?IN PRE-FILLED SYRINGE
     Route: 058
     Dates: start: 20230907

REACTIONS (2)
  - Pain [Recovered/Resolved]
  - Tooth infection [Recovered/Resolved]

NARRATIVE: CASE EVENT DATE: 20230901
